FAERS Safety Report 17075718 (Version 3)
Quarter: 2019Q4

REPORT INFORMATION
  Report Type: Spontaneous
  Country: JP (occurrence: JP)
  Receive Date: 20191126
  Receipt Date: 20191205
  Transmission Date: 20200122
  Serious: Yes (Other)
  Sender: FDA-Public Use
  Company Number: JP-PFIZER INC-2019505966

PATIENT
  Age: 66 Year
  Sex: Male

DRUGS (3)
  1. OXALIPLATIN. [Suspect]
     Active Substance: OXALIPLATIN
     Dosage: 130 MG, CYCLIC (DOSE REDUCED, TOTAL OF 7 CYCLES)
     Dates: start: 2018, end: 2019
  2. OXALIPLATIN. [Suspect]
     Active Substance: OXALIPLATIN
     Indication: GASTRIC CANCER
     Dosage: 170 MG, CYCLIC
     Dates: start: 2018
  3. TS-1 [Concomitant]
     Active Substance: GIMERACIL\OTERACIL\TEGAFUR
     Indication: GASTRIC CANCER
     Dosage: UNK, CYCLIC (TOTAL OF 7 CYCLES)
     Dates: start: 2018, end: 2019

REACTIONS (3)
  - Hepatocellular injury [Unknown]
  - Ascites [Unknown]
  - Hepatic atrophy [Unknown]

NARRATIVE: CASE EVENT DATE: 2019
